FAERS Safety Report 12994842 (Version 2)
Quarter: 2017Q1

REPORT INFORMATION
  Report Type: Spontaneous
  Country: IT (occurrence: IT)
  Receive Date: 20161202
  Receipt Date: 20170117
  Transmission Date: 20170428
  Serious: Yes (Other)
  Sender: FDA-Public Use
  Company Number: IT-TEVA-716080ACC

PATIENT
  Age: 59 Year
  Sex: Male
  Weight: 79 kg

DRUGS (6)
  1. QUETIAPINE TEVA - 25 MG COMPRESSE RIVESTITE CON FILM [Suspect]
     Active Substance: QUETIAPINE
     Indication: DELUSION
     Dosage: 25 MILLIGRAM DAILY;
     Route: 048
     Dates: start: 20161115, end: 20161116
  2. TRAMADOL HYDROCHLORIDE. [Concomitant]
     Active Substance: TRAMADOL HYDROCHLORIDE
     Indication: PAIN
     Route: 042
     Dates: start: 20161117, end: 20161117
  3. QUETIAPINE TEVA - 25 MG COMPRESSE RIVESTITE CON FILM [Suspect]
     Active Substance: QUETIAPINE
     Indication: DELUSION
     Dosage: 50 MILLIGRAM DAILY;
     Route: 048
     Dates: start: 20161116, end: 20161117
  4. PERFALGAN BRISTOL MYERS SQUIBB S.R.L. [Concomitant]
     Indication: PAIN
     Dosage: 3 G
     Route: 042
     Dates: start: 20161108, end: 20161121
  5. SERENASE - 2 MG/2 ML SOLUZIONE INIETTABILE PER USO INTRAMUSCOLARE [Suspect]
     Active Substance: HALOPERIDOL
     Indication: AGITATION
     Dosage: 2 MG AS NECESSARY
     Route: 030
     Dates: start: 20161114, end: 20161117
  6. CLEXANE T - 6000 U.I. AXA 0,6 ML SANOFI S.P.A [Concomitant]
     Indication: AORTIC VALVE REPAIR
     Route: 058
     Dates: start: 20161109

REACTIONS (4)
  - Electrocardiogram QT prolonged [Recovering/Resolving]
  - Altered state of consciousness [Recovering/Resolving]
  - Hypertransaminasaemia [Recovering/Resolving]
  - Hypotension [Recovering/Resolving]

NARRATIVE: CASE EVENT DATE: 20161117
